FAERS Safety Report 14293435 (Version 1)
Quarter: 2017Q4

REPORT INFORMATION
  Report Type: Report from Study
  Country: US (occurrence: US)
  Receive Date: 20171215
  Receipt Date: 20171215
  Transmission Date: 20180321
  Serious: No
  Sender: FDA-Public Use
  Company Number: PHEH2017US040145

PATIENT
  Age: 36 Year
  Sex: Female

DRUGS (2)
  1. COSENTYX [Suspect]
     Active Substance: SECUKINUMAB
     Indication: PSORIASIS
     Dosage: 300 MG, QW
     Route: 058
     Dates: start: 20171128
  2. COSENTYX [Suspect]
     Active Substance: SECUKINUMAB
     Dosage: 150 UNK, UNK
     Route: 058

REACTIONS (2)
  - Speech disorder [Unknown]
  - Laryngitis [Unknown]

NARRATIVE: CASE EVENT DATE: 20171204
